FAERS Safety Report 18545023 (Version 11)
Quarter: 2022Q2

REPORT INFORMATION
  Report Type: Report from Study
  Country: US (occurrence: US)
  Receive Date: 20201125
  Receipt Date: 20220502
  Transmission Date: 20220721
  Serious: Yes (Hospitalization, Other)
  Sender: FDA-Public Use
  Company Number: US-TAKEDA-2020TUS045543

PATIENT
  Age: 85 Year
  Sex: Female
  Weight: 70 kg

DRUGS (37)
  1. HUMAN IMMUNOGLOBULIN G\HYALURONIDASE RECOMBINANT HUMAN [Suspect]
     Active Substance: HUMAN IMMUNOGLOBULIN G\HYALURONIDASE RECOMBINANT HUMAN
     Indication: Primary immunodeficiency syndrome
     Dosage: 27.5 GRAM, Q4WEEKS
     Route: 058
     Dates: start: 20180805
  2. HUMAN IMMUNOGLOBULIN G\HYALURONIDASE RECOMBINANT HUMAN [Suspect]
     Active Substance: HUMAN IMMUNOGLOBULIN G\HYALURONIDASE RECOMBINANT HUMAN
     Indication: Congenital hypogammaglobulinaemia
     Dosage: 25 GRAM, MONTHLY
     Route: 065
  3. HUMAN IMMUNOGLOBULIN G\HYALURONIDASE RECOMBINANT HUMAN [Suspect]
     Active Substance: HUMAN IMMUNOGLOBULIN G\HYALURONIDASE RECOMBINANT HUMAN
     Dosage: 25 GRAM, Q4WEEKS
     Route: 058
     Dates: start: 20180805
  4. HUMAN IMMUNOGLOBULIN G\HYALURONIDASE RECOMBINANT HUMAN [Suspect]
     Active Substance: HUMAN IMMUNOGLOBULIN G\HYALURONIDASE RECOMBINANT HUMAN
     Dosage: 27.5 GRAM, Q4WEEKS
     Route: 058
     Dates: start: 20180830
  5. IBUPROFEN [Suspect]
     Active Substance: IBUPROFEN
     Indication: Product used for unknown indication
     Route: 065
  6. DIPHENHYDRAMINE [Concomitant]
     Active Substance: DIPHENHYDRAMINE
     Indication: Product used for unknown indication
     Dosage: UNK
     Route: 065
  7. SODIUM CHLORIDE [Concomitant]
     Active Substance: SODIUM CHLORIDE
     Indication: Product used for unknown indication
     Route: 065
  8. EPINEPHRINE [Concomitant]
     Active Substance: EPINEPHRINE
     Route: 065
  9. NEXIUM [Concomitant]
     Active Substance: ESOMEPRAZOLE MAGNESIUM
     Route: 065
  10. AZITHROMYCIN [Concomitant]
     Active Substance: AZITHROMYCIN
     Route: 065
  11. KETOROLAC TROMETHAMINE [Concomitant]
     Active Substance: KETOROLAC TROMETHAMINE
     Route: 065
  12. BRIMONIDINE [Concomitant]
     Active Substance: BRIMONIDINE TARTRATE
     Route: 065
  13. VICODIN ES [Concomitant]
     Active Substance: ACETAMINOPHEN\HYDROCODONE BITARTRATE
     Route: 065
  14. DETROL [Concomitant]
     Active Substance: TOLTERODINE TARTRATE
     Route: 065
  15. SPIRIVA [Concomitant]
     Active Substance: TIOTROPIUM BROMIDE MONOHYDRATE
     Route: 065
  16. BISOPROLOL [Concomitant]
     Active Substance: BISOPROLOL
     Route: 065
  17. MINERALS\VITAMINS [Concomitant]
     Active Substance: MINERALS\VITAMINS
     Route: 065
  18. CELEBREX [Concomitant]
     Active Substance: CELECOXIB
     Route: 065
  19. MONTELUKAST SODIUM [Concomitant]
     Active Substance: MONTELUKAST SODIUM
     Route: 065
  20. DIOVAN HCT [Concomitant]
     Active Substance: HYDROCHLOROTHIAZIDE\VALSARTAN
     Route: 065
  21. LORAZEPAM [Concomitant]
     Active Substance: LORAZEPAM
     Route: 065
  22. ASPIRIN [Concomitant]
     Active Substance: ASPIRIN
     Route: 065
  23. VENTOLIN HFA [Concomitant]
     Active Substance: ALBUTEROL SULFATE
     Route: 065
  24. LEVOTHYROXINE [Concomitant]
     Active Substance: LEVOTHYROXINE
     Route: 065
  25. FLUTICASONE [Concomitant]
     Active Substance: FLUTICASONE
     Route: 065
  26. SIMVASTATIN [Concomitant]
     Active Substance: SIMVASTATIN
     Route: 065
  27. QVAR [Concomitant]
     Active Substance: BECLOMETHASONE DIPROPIONATE
     Route: 065
  28. GABAPENTIN [Concomitant]
     Active Substance: GABAPENTIN
     Route: 065
  29. BISOPROLOL FUMARATE [Concomitant]
     Active Substance: BISOPROLOL FUMARATE
     Route: 065
  30. BRIMONIDINE TARTRATE [Concomitant]
     Active Substance: BRIMONIDINE TARTRATE
     Route: 065
  31. VENTOLIN [Concomitant]
     Active Substance: ALBUTEROL SULFATE
     Route: 065
  32. FLUTICASONE PROPIONATE [Concomitant]
     Active Substance: FLUTICASONE PROPIONATE
     Route: 065
  33. QVAR REDIHALER [Concomitant]
     Active Substance: BECLOMETHASONE DIPROPIONATE
     Route: 065
  34. HYDROCODONE [Concomitant]
     Active Substance: HYDROCODONE
  35. VITAMINS [Concomitant]
     Active Substance: VITAMINS
  36. DIOVAN [Concomitant]
     Active Substance: VALSARTAN
  37. ALBUTEROL [Concomitant]
     Active Substance: ALBUTEROL

REACTIONS (20)
  - Gastrointestinal disorder [Unknown]
  - Urinary tract disorder [Unknown]
  - Haemorrhage [Unknown]
  - Cellulitis [Unknown]
  - Cystitis interstitial [Unknown]
  - Urinary tract infection [Unknown]
  - Fall [Unknown]
  - Patella fracture [Unknown]
  - Limb injury [Unknown]
  - Joint injury [Unknown]
  - Endoscopy [Unknown]
  - Drug hypersensitivity [Unknown]
  - Abdominal discomfort [Unknown]
  - Dysuria [Unknown]
  - Weight decreased [Unknown]
  - Sciatica [Unknown]
  - Pyrexia [Unknown]
  - Pruritus [Unknown]
  - Skin atrophy [Unknown]
  - Muscular weakness [Unknown]

NARRATIVE: CASE EVENT DATE: 20210201
